FAERS Safety Report 6333503-3 (Version None)
Quarter: 2009Q3

REPORT INFORMATION
  Report Type: 
  Country: None (occurrence: None)
  Receive Date: 20090828
  Receipt Date: 20090702
  Transmission Date: 20100115
  Serious: Yes (Other)
  Sender: FDA-Public Use
  Company Number: FR-ABBOTT-09P-056-0593772-00

PATIENT
  Sex: Male

DRUGS (7)
  1. RITONAVIR SOFT GELATIN CAPSULES [Suspect]
     Indication: DRUG USE FOR UNKNOWN INDICATION
     Route: 065
  2. TAZOCILLINE [Suspect]
     Indication: LUNG DISORDER
     Route: 042
     Dates: start: 20090618, end: 20090624
  3. ZITHROMAX [Suspect]
     Indication: LUNG DISORDER
     Route: 048
     Dates: start: 20090620, end: 20090624
  4. KIVEXA [Suspect]
     Indication: DRUG USE FOR UNKNOWN INDICATION
     Route: 065
  5. TELZIR [Suspect]
     Indication: DRUG USE FOR UNKNOWN INDICATION
     Route: 065
  6. SUBUTEX [Suspect]
     Indication: DRUG USE FOR UNKNOWN INDICATION
     Route: 048
  7. ERYTHROCIN LACTOBIONATE [Suspect]
     Indication: LUNG DISORDER
     Route: 042
     Dates: start: 20090618, end: 20090620

REACTIONS (1)
  - NEUTROPENIA [None]
